FAERS Safety Report 5236403-5 (Version None)
Quarter: 2007Q1

REPORT INFORMATION
  Report Type: 
  Country: None (occurrence: None)
  Receive Date: 20070212
  Receipt Date: 20070202
  Transmission Date: 20070707
  Serious: Yes (Death, Hospitalization)
  Sender: FDA-Public Use
  Company Number: US-PFIZER INC-2007009051

PATIENT
  Sex: Male
  Weight: 136.1 kg

DRUGS (12)
  1. XANAX [Suspect]
  2. MORPHINE SUL INJ [Suspect]
     Indication: MUSCULOSKELETAL CHEST PAIN
     Route: 048
     Dates: start: 20031201, end: 20031201
  3. OXYCODONE HCL [Suspect]
     Indication: MUSCULOSKELETAL CHEST PAIN
     Route: 048
     Dates: start: 20031220, end: 20031201
  4. PERCOCET [Suspect]
     Indication: MUSCULOSKELETAL CHEST PAIN
     Route: 048
     Dates: start: 20031220, end: 20031201
  5. OXYCONTIN [Suspect]
  6. NEURONTIN [Concomitant]
     Dates: start: 20000101, end: 20030101
  7. LISINOPRIL [Concomitant]
     Dates: start: 20000101, end: 20030101
  8. DIOVAN [Concomitant]
     Dates: start: 20000101, end: 20030101
  9. LIPITOR [Concomitant]
     Dates: start: 20000101, end: 20030101
  10. METFORMIN HCL [Concomitant]
     Dates: start: 20000101, end: 20030101
  11. AVANDIA [Concomitant]
     Dates: start: 20000101, end: 20030101
  12. LEVAQUIN [Concomitant]
     Dates: start: 20031201, end: 20030101

REACTIONS (8)
  - ANOXIC ENCEPHALOPATHY [None]
  - COMA [None]
  - DEPRESSED LEVEL OF CONSCIOUSNESS [None]
  - DRUG SCREEN POSITIVE [None]
  - DYSARTHRIA [None]
  - DYSPNOEA [None]
  - OVERDOSE [None]
  - THERAPEUTIC AGENT TOXICITY [None]
